FAERS Safety Report 12628536 (Version 1)
Quarter: 2016Q3

REPORT INFORMATION
  Report Type: Spontaneous
  Country: US (occurrence: US)
  Receive Date: 20160808
  Receipt Date: 20160808
  Transmission Date: 20161109
  Serious: No
  Sender: FDA-Public Use
  Company Number: US-JAZZ-2016-US-004299

PATIENT
  Sex: Female

DRUGS (22)
  1. CONCERTA [Concomitant]
     Active Substance: METHYLPHENIDATE HYDROCHLORIDE
  2. XYREM [Suspect]
     Active Substance: SODIUM OXYBATE
     Dosage: 5.5 G, FIRST DOSE
     Route: 048
     Dates: start: 201508
  3. XYREM [Suspect]
     Active Substance: SODIUM OXYBATE
     Dosage: 4.5 G, SECOND DOSE
     Route: 048
     Dates: start: 201508
  4. MIRALAX [Suspect]
     Active Substance: POLYETHYLENE GLYCOL 3350
     Indication: CONSTIPATION
  5. PROVIGIL [Concomitant]
     Active Substance: MODAFINIL
  6. CYMBALTA [Concomitant]
     Active Substance: DULOXETINE HYDROCHLORIDE
  7. ALDARA [Concomitant]
     Active Substance: IMIQUIMOD
  8. CEPHALEXIN. [Concomitant]
     Active Substance: CEPHALEXIN
  9. RESTASIS [Concomitant]
     Active Substance: CYCLOSPORINE
  10. YASMIN [Concomitant]
     Active Substance: DROSPIRENONE\ETHINYL ESTRADIOL
  11. FISH OIL CONCENTRATE [Concomitant]
  12. LO LOESTRIN FE [Concomitant]
     Active Substance: ETHINYL ESTRADIOL\NORETHINDRONE ACETATE
  13. PROMETHAZINE [Concomitant]
     Active Substance: PROMETHAZINE\PROMETHAZINE HYDROCHLORIDE
  14. XYREM [Suspect]
     Active Substance: SODIUM OXYBATE
     Dosage: DOSE ADJUSTMENTS
     Route: 048
  15. DOXYCYCLINE. [Concomitant]
     Active Substance: DOXYCYCLINE
  16. XYREM [Suspect]
     Active Substance: SODIUM OXYBATE
     Indication: NARCOLEPSY
     Dosage: 3 G, BID
     Route: 048
     Dates: start: 200512, end: 200605
  17. BIOTIN [Concomitant]
     Active Substance: BIOTIN
     Dosage: UNK
     Dates: start: 20151209
  18. BUSPIRONE HCL [Concomitant]
     Active Substance: BUSPIRONE HYDROCHLORIDE
  19. GLYCOLAX [Concomitant]
     Active Substance: POLYETHYLENE GLYCOL 3350
  20. LUNESTA [Concomitant]
     Active Substance: ESZOPICLONE
  21. MIRVASO [Concomitant]
     Active Substance: BRIMONIDINE TARTRATE
     Dosage: UNK
  22. AMITIZA [Concomitant]
     Active Substance: LUBIPROSTONE

REACTIONS (2)
  - Constipation [Recovering/Resolving]
  - Drug ineffective [Unknown]
